FAERS Safety Report 18574439 (Version 1)
Quarter: 2020Q4

REPORT INFORMATION
  Report Type: Spontaneous
  Country: US (occurrence: US)
  Receive Date: 20201202
  Receipt Date: 20201202
  Transmission Date: 20210114
  Serious: No
  Sender: FDA-Public Use
  Company Number: None

PATIENT
  Age: 53 Year
  Sex: Female
  Weight: 72 kg

DRUGS (5)
  1. TRETINOIN CREAM 0.1% [Suspect]
     Active Substance: TRETINOIN
  2. ELIQUIS [Concomitant]
     Active Substance: APIXABAN
  3. LISCENOPRIL [Concomitant]
  4. BIMATOPROST OPHTHALMIC SOLUTION CAREPROST [Suspect]
     Active Substance: BIMATOPROST
     Indication: POST VIRAL FATIGUE SYNDROME
     Dosage: ?          QUANTITY:3 DROP(S);?
     Route: 061
  5. LADY-ERA (SILDENAFIL) [Suspect]
     Active Substance: SILDENAFIL
     Indication: POST VIRAL FATIGUE SYNDROME
     Dosage: ?          QUANTITY:28 TABLET(S);?
     Route: 048

REACTIONS (2)
  - Eye irritation [None]
  - Eye disorder [None]

NARRATIVE: CASE EVENT DATE: 20200901
